FAERS Safety Report 9246502 (Version 1)
Quarter: 2013Q2

REPORT INFORMATION
  Report Type: Spontaneous
  Country: US (occurrence: US)
  Receive Date: 20130422
  Receipt Date: 20130422
  Transmission Date: 20140414
  Serious: No
  Sender: FDA-Public Use
  Company Number: US-TEVA-399294USA

PATIENT
  Age: 55 Year
  Sex: Female
  Weight: 81.72 kg

DRUGS (13)
  1. COPAXONE [Suspect]
     Indication: MULTIPLE SCLEROSIS
     Dates: start: 20121206
  2. COPAXONE [Suspect]
     Indication: DEMYELINATION
  3. BRIMONIDINE TARTRATE [Concomitant]
  4. TIMOPTIC [Concomitant]
     Indication: EYELID DISORDER
  5. WELLBUTRIN [Concomitant]
     Dosage: 200 MILLIGRAM DAILY; OFF AND ON
  6. AMBIEN [Concomitant]
  7. VITAMIN D [Concomitant]
  8. CALCIUM [Concomitant]
  9. MAGNESIUM CITRATE [Concomitant]
  10. MULTIVITAMIN [Concomitant]
  11. ANTIOXIDANT MIX [Concomitant]
  12. LYSINE [Concomitant]
  13. COENZYME Q10 [Concomitant]

REACTIONS (9)
  - Eye disorder [Not Recovered/Not Resolved]
  - Eye pain [Unknown]
  - Scleral discolouration [Unknown]
  - Eye irritation [Unknown]
  - Eyelid oedema [Unknown]
  - Ocular hyperaemia [Unknown]
  - Dry eye [Unknown]
  - Eye irritation [Unknown]
  - Conjunctivitis [Unknown]
